FAERS Safety Report 7024161-3 (Version None)
Quarter: 2010Q4

REPORT INFORMATION
  Report Type: 
  Country: None (occurrence: None)
  Receive Date: 20101001
  Receipt Date: 20100923
  Transmission Date: 20110411
  Serious: Yes (Other)
  Sender: FDA-Public Use
  Company Number: VE-ROCHE-729279

PATIENT

DRUGS (1)
  1. BEVACIZUMAB [Suspect]
     Dosage: 1.25 MG OR 2.5 MG
     Route: 031

REACTIONS (1)
  - RETINAL DETACHMENT [None]
